FAERS Safety Report 8208211-4 (Version None)
Quarter: 2012Q1

REPORT INFORMATION
  Report Type: 
  Country: None (occurrence: None)
  Receive Date: 20120314
  Receipt Date: 20120309
  Transmission Date: 20120608
  Serious: Yes (Hospitalization)
  Sender: FDA-Public Use
  Company Number: PHHY2012VE021465

PATIENT
  Sex: Female

DRUGS (5)
  1. BENICAR HCT [Concomitant]
     Indication: HYPERTENSION
     Dosage: 1 DF (12.5 MG/ 40 MG), QD
     Route: 048
     Dates: start: 20080101
  2. ZOLEDRONOC ACID [Suspect]
     Dosage: 5 MG, YEARLY
     Route: 042
     Dates: start: 20120112
  3. ZOLEDRONOC ACID [Suspect]
     Dosage: 5 MG, YEARLY
     Route: 042
     Dates: start: 20110101
  4. ZOLEDRONOC ACID [Suspect]
     Dosage: 5 MG, YEARLY
     Route: 042
     Dates: start: 20091001
  5. ZOLEDRONOC ACID [Suspect]
     Indication: OSTEOPOROSIS
     Dosage: 5 MG, YEARLY
     Route: 042
     Dates: start: 20080801

REACTIONS (2)
  - BONE EROSION [None]
  - PAIN IN EXTREMITY [None]
